FAERS Safety Report 7680426-3 (Version None)
Quarter: 2011Q3

REPORT INFORMATION
  Report Type: 
  Country: None (occurrence: None)
  Receive Date: 20110812
  Receipt Date: 20110810
  Transmission Date: 20111222
  Serious: Yes (Life-Threatening, Hospitalization)
  Sender: FDA-Public Use
  Company Number: US-PFIZER INC-2011107447

PATIENT
  Sex: Male
  Weight: 81.633 kg

DRUGS (6)
  1. ABILIFY [Concomitant]
     Dosage: 10 MG, UNK
     Dates: end: 20100601
  2. STRATTERA [Concomitant]
     Dosage: 40 MG, DAILY IN AM
  3. GEODON [Suspect]
     Indication: MAJOR DEPRESSION
     Dosage: 80 MG, 1X/DAY (2 OF 40MG AT HS)
     Route: 048
  4. LITHIUM CARBONATE [Concomitant]
     Dosage: 450 UNK, 2X/DAY
  5. GEODON [Suspect]
     Indication: SUICIDE ATTEMPT
     Dosage: 40 MG IN THE MORNING AND 80 MG IN THE EVENING
     Route: 048
     Dates: start: 20090101
  6. OXCARBAZEPINE [Concomitant]
     Dosage: UNK
     Dates: end: 20110101

REACTIONS (2)
  - SUICIDE ATTEMPT [None]
  - MAJOR DEPRESSION [None]
